FAERS Safety Report 4977323-0 (Version None)
Quarter: 2006Q2

REPORT INFORMATION
  Report Type: 
  Country: None (occurrence: None)
  Receive Date: 20060419
  Receipt Date: 20050826
  Transmission Date: 20061013
  Serious: Yes (Hospitalization)
  Sender: FDA-Public Use
  Company Number: US-MERCK-0508USA04413

PATIENT
  Age: 55 Year
  Sex: Male
  Weight: 136 kg

DRUGS (4)
  1. VIOXX [Suspect]
     Indication: ARTHRITIS
     Route: 048
     Dates: start: 20010810, end: 20040310
  2. TYLENOL (CAPLET) [Concomitant]
     Route: 065
  3. MOTRIN [Concomitant]
     Route: 065
  4. ZANTAC [Concomitant]
     Route: 065

REACTIONS (14)
  - ACUTE CORONARY SYNDROME [None]
  - ALANINE AMINOTRANSFERASE INCREASED [None]
  - ANXIETY [None]
  - ASPARTATE AMINOTRANSFERASE INCREASED [None]
  - BLOOD PRESSURE INCREASED [None]
  - CHEST PAIN [None]
  - CORONARY ARTERY DISEASE [None]
  - DEPRESSION [None]
  - EMOTIONAL DISTRESS [None]
  - GASTROOESOPHAGEAL REFLUX DISEASE [None]
  - HYPERCHOLESTEROLAEMIA [None]
  - HYPERTENSION [None]
  - PAIN [None]
  - VIRAL INFECTION [None]
